FAERS Safety Report 5613713-0 (Version None)
Quarter: 2008Q1

REPORT INFORMATION
  Report Type: 
  Country: None (occurrence: None)
  Receive Date: 20080205
  Receipt Date: 20080123
  Transmission Date: 20080703
  Serious: Yes (Hospitalization)
  Sender: FDA-Public Use
  Company Number: GB-NOVOPROD-271340

PATIENT
  Sex: Male

DRUGS (15)
  1. LEVEMIR INNOLET [Suspect]
     Dosage: 60 IU, QD
     Route: 058
     Dates: start: 20041111
  2. NIFEDIPINE [Concomitant]
     Dosage: 30 MG, QID
     Route: 048
     Dates: start: 20041118
  3. DOXAZOSIN [Concomitant]
     Dosage: 4 MG, QD
     Route: 048
     Dates: start: 20051115
  4. OMEPRAZOLE [Concomitant]
     Dosage: 40 MG, QD
     Route: 048
     Dates: start: 19970821
  5. AZATHIOPRINE [Concomitant]
     Dosage: 50 MG, QD
     Route: 048
     Dates: start: 19950101
  6. PREDNISOLONE [Concomitant]
     Dosage: 20 MG, QD
     Route: 048
     Dates: start: 20070101
  7. TACROLIMUS [Concomitant]
     Dosage: 500 UG, QD
     Route: 048
  8. FLUCONAZOLE [Concomitant]
     Dosage: 50 MG, QD
  9. LAMISIL                            /00992601/ [Concomitant]
     Dosage: UNK, BID
     Route: 061
  10. LANZOPRAZOL [Concomitant]
     Dosage: 30 MG, QD
     Route: 048
  11. NOVORAPID [Concomitant]
     Dosage: 59 IU, QD
     Route: 058
  12. DAKTACORT                          /00449501/ [Concomitant]
     Route: 061
  13. SIMVASTATIN [Concomitant]
     Dosage: 10 MG, QD
     Route: 048
  14. KETOCONAZOL [Concomitant]
     Dosage: UNK, BID
     Route: 061
  15. ASPIRINE                           /00002701/ [Concomitant]
     Dosage: 75 MG, QD
     Route: 048

REACTIONS (3)
  - LIVER FUNCTION TEST ABNORMAL [None]
  - RASH GENERALISED [None]
  - SPLENOMEGALY [None]
